FAERS Safety Report 8949097 (Version 1)
Quarter: 2012Q4

REPORT INFORMATION
  Report Type: 
  Country: US (occurrence: US)
  Receive Date: 20121206
  Receipt Date: 20121206
  Transmission Date: 20130627
  Serious: No
  Sender: FDA-Public Use
  Company Number: US-PFIZER INC-2012300820

PATIENT
  Age: 47 Year
  Sex: Male
  Weight: 90.7 kg

DRUGS (2)
  1. VIAGRA [Suspect]
     Indication: ERECTILE DYSFUNCTION
     Dosage: 50 mg, UNK
     Route: 048
  2. VIAGRA [Suspect]
     Dosage: 100 mg, UNK
     Route: 048

REACTIONS (3)
  - Penis disorder [Unknown]
  - Penile curvature [Unknown]
  - Penile pain [Unknown]
